FAERS Safety Report 9506538 (Version 1)
Quarter: 2013Q3

REPORT INFORMATION
  Report Type: Spontaneous
  Country: US (occurrence: None)
  Receive Date: 20130905
  Receipt Date: 20130905
  Transmission Date: 20140515
  Serious: No
  Sender: FDA-Public Use
  Company Number: None

PATIENT
  Age: 35 Year
  Sex: Male

DRUGS (3)
  1. TEGRETOL [Suspect]
     Indication: EPILEPSY
     Dosage: UNKNOWN TEGRETOL: SHORT PERIOD OF TIME
  2. DEPAKOTE [Suspect]
     Indication: EPILEPSY
     Dosage: UNKNOWN APPROXIMATELY 10 YEARS
  3. VNS [Concomitant]

REACTIONS (2)
  - Dizziness [None]
  - Abasia [None]
